FAERS Safety Report 14135192 (Version 1)
Quarter: 2017Q4

REPORT INFORMATION
  Report Type: Spontaneous
  Country: US (occurrence: US)
  Receive Date: 20171027
  Receipt Date: 20171027
  Transmission Date: 20180321
  Serious: No
  Sender: FDA-Public Use
  Company Number: US-ASTRAZENECA-2017SF07636

PATIENT
  Sex: Male

DRUGS (3)
  1. NEXIUM [Suspect]
     Active Substance: ESOMEPRAZOLE MAGNESIUM
     Indication: OESOPHAGEAL STENOSIS
     Dosage: 2 DF, DAILY (TOOK 2 ONE DAY)
     Route: 048
  2. NEXIUM [Suspect]
     Active Substance: ESOMEPRAZOLE MAGNESIUM
     Indication: OESOPHAGEAL STENOSIS
     Dosage: GENERIC
     Route: 048
  3. NEXIUM [Suspect]
     Active Substance: ESOMEPRAZOLE MAGNESIUM
     Indication: OESOPHAGEAL STENOSIS
     Dosage: 3 DF, DAILY (HE TOOK 3)
     Route: 048

REACTIONS (2)
  - Intentional product misuse [Recovering/Resolving]
  - Drug ineffective [Unknown]
